FAERS Safety Report 5668910-5 (Version None)
Quarter: 2008Q1

REPORT INFORMATION
  Report Type: 
  Country: None (occurrence: None)
  Receive Date: 20080226
  Receipt Date: 20070222
  Transmission Date: 20080703
  Serious: Yes (Other)
  Sender: FDA-Public Use
  Company Number: 483752

PATIENT
  Age: 15 Year
  Sex: Female

DRUGS (2)
  1. ACCUTANE [Suspect]
     Indication: ACNE
     Dates: start: 20020615
  2. CONTRACEPTIVE (CONTRACEPTIVE NOS) [Suspect]
     Indication: CONTRACEPTION
     Dates: start: 20060615

REACTIONS (3)
  - ACNE [None]
  - CEREBROVASCULAR ACCIDENT [None]
  - WISDOM TEETH REMOVAL [None]
